FAERS Safety Report 9775576 (Version 1)
Quarter: 2013Q4

REPORT INFORMATION
  Report Type: Spontaneous
  Country: US (occurrence: None)
  Receive Date: 20131218
  Receipt Date: 20131218
  Transmission Date: 20140711
  Serious: Yes (Hospitalization)
  Sender: FDA-Public Use
  Company Number: AXC-2013-000664

PATIENT
  Age: 63 Year
  Sex: Female
  Weight: 89 kg

DRUGS (1)
  1. CANASA [Suspect]
     Indication: PRODUCT USED FOR UNKNOWN INDICATION
     Dosage: 1000 MG, SINGLE, RECTAL
     Route: 054

REACTIONS (6)
  - Drug hypersensitivity [None]
  - Headache [None]
  - Chest pain [None]
  - Dyspnoea [None]
  - Abdominal pain [None]
  - Dizziness [None]
